FAERS Safety Report 5458056-3 (Version None)
Quarter: 2007Q3

REPORT INFORMATION
  Report Type: 
  Country: None (occurrence: None)
  Receive Date: 20070919
  Receipt Date: 20070912
  Transmission Date: 20080115
  Serious: Yes (Other)
  Sender: FDA-Public Use
  Company Number: PHBS2007JP15090

PATIENT

DRUGS (1)
  1. ZOMETA [Suspect]
     Indication: BONE LESION
     Dosage: 4 MG, QD
     Route: 042

REACTIONS (1)
  - OSTEONECROSIS [None]
